FAERS Safety Report 19996655 (Version 2)
Quarter: 2021Q4

REPORT INFORMATION
  Report Type: Spontaneous
  Country: CN (occurrence: CN)
  Receive Date: 20211025
  Receipt Date: 20211108
  Transmission Date: 20220303
  Serious: Yes (Other)
  Sender: FDA-Public Use
  Company Number: CN-PFIZER INC-202101382653

PATIENT
  Age: 83 Year
  Sex: Female
  Weight: 53.3 kg

DRUGS (14)
  1. SERTRALINE HYDROCHLORIDE [Suspect]
     Active Substance: SERTRALINE HYDROCHLORIDE
     Indication: Affective disorder
     Dosage: 25 MG, 1X/DAY
     Route: 048
     Dates: start: 20210504, end: 20210505
  2. SERTRALINE HYDROCHLORIDE [Suspect]
     Active Substance: SERTRALINE HYDROCHLORIDE
     Dosage: 50.000 MG, 1X/DAY
     Route: 048
     Dates: start: 20210506, end: 20210621
  3. VALPROATE MAGNESIUM [Suspect]
     Active Substance: VALPROATE MAGNESIUM
     Indication: Affective disorder
     Dosage: 0.25 G, 2X/DAY
     Route: 048
     Dates: start: 20210513, end: 20210514
  4. VALPROATE MAGNESIUM [Suspect]
     Active Substance: VALPROATE MAGNESIUM
     Dosage: 0.75 G, DAILY (0.5G QM PO, 0.25G QN PO)
     Route: 048
     Dates: start: 20210515, end: 20210523
  5. VALPROATE MAGNESIUM [Suspect]
     Active Substance: VALPROATE MAGNESIUM
     Dosage: 0.5 G, 1X/DAY
     Route: 048
     Dates: start: 20210524, end: 20210527
  6. MEMANTINE HYDROCHLORIDE [Suspect]
     Active Substance: MEMANTINE HYDROCHLORIDE
     Indication: Dementia Alzheimer^s type
     Dosage: 5 MG, 1X/DAY
     Route: 048
     Dates: start: 20210506, end: 20210512
  7. MEMANTINE HYDROCHLORIDE [Suspect]
     Active Substance: MEMANTINE HYDROCHLORIDE
     Dosage: 10.000 MG, 1X/DAY
     Route: 048
     Dates: start: 20210513, end: 20210621
  8. CLOPIDOGREL BISULFATE [Suspect]
     Active Substance: CLOPIDOGREL BISULFATE
     Indication: Arteriosclerosis coronary artery
     Dosage: 75.000 MG, 1X/DAY
     Route: 048
     Dates: start: 20210504, end: 20210621
  9. CLOPIDOGREL BISULFATE [Suspect]
     Active Substance: CLOPIDOGREL BISULFATE
     Indication: Thrombosis prophylaxis
  10. VALSARTAN [Suspect]
     Active Substance: VALSARTAN
     Indication: Arteriosclerosis coronary artery
     Dosage: 80.000 MG, 1X/DAY
     Route: 048
     Dates: start: 20210504, end: 20210621
  11. VALSARTAN [Suspect]
     Active Substance: VALSARTAN
     Indication: Hypertension
  12. AGOMELATINE [Suspect]
     Active Substance: AGOMELATINE
     Indication: Affective disorder
     Dosage: 25.000 MG, 1X/DAY
     Route: 048
     Dates: start: 20210518, end: 20210527
  13. AGOMELATINE [Suspect]
     Active Substance: AGOMELATINE
     Indication: Depressive symptom
  14. AMLODIPINE BESYLATE [Concomitant]
     Active Substance: AMLODIPINE BESYLATE
     Indication: Hypertension
     Dosage: 5.000 MG, 1X/DAY
     Route: 048
     Dates: start: 20210504, end: 20210621

REACTIONS (3)
  - Hepatic function abnormal [Recovered/Resolved]
  - Hepatitis B core antibody positive [Unknown]
  - Off label use [Unknown]

NARRATIVE: CASE EVENT DATE: 20210504
